FAERS Safety Report 24909338 (Version 1)
Quarter: 2025Q1

REPORT INFORMATION
  Report Type: Spontaneous
  Country: ES (occurrence: ES)
  Receive Date: 20250131
  Receipt Date: 20250131
  Transmission Date: 20250409
  Serious: Yes (Hospitalization, Other)
  Sender: RANBAXY
  Company Number: ES-SUN PHARMACEUTICAL INDUSTRIES LTD-2025RR-491017

PATIENT
  Age: 63 Year
  Sex: Female

DRUGS (8)
  1. IMATINIB [Suspect]
     Active Substance: IMATINIB
     Indication: Chronic myeloid leukaemia
     Dosage: 400 MG, PER DAY
     Route: 065
  2. DASATINIB [Suspect]
     Active Substance: DASATINIB
     Indication: Philadelphia positive chronic myeloid leukaemia
     Dosage: 100 MG, PER DAY
     Route: 065
  3. DASATINIB [Suspect]
     Active Substance: DASATINIB
     Dosage: 50 MG, PER DAY
     Route: 065
  4. DASATINIB [Suspect]
     Active Substance: DASATINIB
     Dosage: 140 MG, PER DAY
     Route: 065
     Dates: start: 202309
  5. DASATINIB [Suspect]
     Active Substance: DASATINIB
     Dosage: 70 MG, PER DAY
     Route: 065
  6. CYTARABINE [Suspect]
     Active Substance: CYTARABINE
     Indication: Philadelphia positive chronic myeloid leukaemia
     Route: 065
     Dates: start: 202309
  7. FLUDARABINE [Suspect]
     Active Substance: FLUDARABINE PHOSPHATE
     Indication: Philadelphia positive chronic myeloid leukaemia
     Route: 065
     Dates: start: 202309
  8. IDARUBICIN [Suspect]
     Active Substance: IDARUBICIN
     Indication: Philadelphia positive chronic myeloid leukaemia
     Route: 065
     Dates: start: 202309

REACTIONS (5)
  - Tumour lysis syndrome [Recovered/Resolved]
  - Acute pulmonary oedema [Recovered/Resolved]
  - Febrile neutropenia [Recovered/Resolved]
  - Cytopenia [Not Recovered/Not Resolved]
  - Drug resistance [Unknown]
